FAERS Safety Report 5459839-6 (Version None)
Quarter: 2007Q3

REPORT INFORMATION
  Report Type: 
  Country: None (occurrence: None)
  Receive Date: 20070810
  Receipt Date: 20070605
  Transmission Date: 20080115
  Serious: Yes (Other)
  Sender: FDA-Public Use
  Company Number: 200711072BWH

PATIENT
  Age: 14 Year
  Sex: Male

DRUGS (1)
  1. TRASYLOL [Suspect]
     Indication: CARDIAC OPERATION

REACTIONS (2)
  - HYPERSENSITIVITY [None]
  - HYPOTENSION [None]
